FAERS Safety Report 22096415 (Version 1)
Quarter: 2023Q1

REPORT INFORMATION
  Report Type: Spontaneous
  Country: CN (occurrence: CN)
  Receive Date: 20230315
  Receipt Date: 20230315
  Transmission Date: 20230418
  Serious: Yes (Hospitalization)
  Sender: FDA-Public Use
  Company Number: CN-HALEON-CNCH2023APC011023

PATIENT

DRUGS (2)
  1. IBUPROFEN [Suspect]
     Active Substance: IBUPROFEN
     Indication: Periarthritis
     Dosage: 1 DF, BID
     Route: 048
     Dates: start: 20230206, end: 20230208
  2. IBUPROFEN [Suspect]
     Active Substance: IBUPROFEN
     Indication: Pain

REACTIONS (4)
  - Rash [Recovered/Resolved]
  - Blister [Recovered/Resolved]
  - Dyspnoea [Recovered/Resolved]
  - Urticaria [Recovered/Resolved]

NARRATIVE: CASE EVENT DATE: 20230208
